FAERS Safety Report 25183628 (Version 1)
Quarter: 2025Q2

REPORT INFORMATION
  Report Type: Spontaneous
  Country: US (occurrence: US)
  Receive Date: 20250410
  Receipt Date: 20250410
  Transmission Date: 20250716
  Serious: Yes (Hospitalization)
  Sender: GRIFOLS
  Company Number: US-IGSA-BIG0033505

PATIENT
  Age: 4 Year
  Sex: Female

DRUGS (1)
  1. GAMUNEX-C [Suspect]
     Active Substance: HUMAN IMMUNOGLOBULIN G
     Indication: Immunodeficiency
     Route: 042
     Dates: start: 20230920

REACTIONS (3)
  - Abdominal pain [Unknown]
  - Lethargy [Unknown]
  - Rash [Unknown]

NARRATIVE: CASE EVENT DATE: 20250303
